FAERS Safety Report 6248505-5 (Version None)
Quarter: 2009Q2

REPORT INFORMATION
  Report Type: 
  Country: None (occurrence: None)
  Receive Date: 20090629
  Receipt Date: 20090624
  Transmission Date: 20091009
  Serious: Yes (Life-Threatening, Hospitalization)
  Sender: FDA-Public Use
  Company Number: DE-ROCHE-640178

PATIENT
  Sex: Male
  Weight: 88 kg

DRUGS (4)
  1. CEFTRIAXONE [Suspect]
     Indication: DRUG USE FOR UNKNOWN INDICATION
     Route: 065
     Dates: start: 20090612, end: 20090619
  2. MYCOPHENOLATE MOFETIL [Suspect]
     Route: 048
     Dates: start: 20090527
  3. TACROLIMUS [Concomitant]
     Route: 048
     Dates: start: 20090528
  4. PREDNISOLONE [Concomitant]
     Dosage: FREQUENCY: EVERY MORNING
     Route: 048
     Dates: start: 20090527

REACTIONS (1)
  - TOXIC EPIDERMAL NECROLYSIS [None]
